FAERS Safety Report 5272076-3 (Version None)
Quarter: 2007Q1

REPORT INFORMATION
  Report Type: 
  Country: None (occurrence: None)
  Receive Date: 20070322
  Receipt Date: 20070312
  Transmission Date: 20070707
  Serious: Yes (Hospitalization)
  Sender: FDA-Public Use
  Company Number: AUWYE964612MAR07

PATIENT
  Sex: Female
  Weight: 60 kg

DRUGS (14)
  1. VENLAFAXINE HYDROCHLORIDE [Suspect]
     Indication: DEPRESSION
     Route: 048
     Dates: start: 20060407, end: 20060411
  2. ESOMEPRAZOLE MAGNESIUM [Concomitant]
     Dosage: 40 MG DAILY
     Route: 048
  3. FERROUS SULFATE [Concomitant]
     Dosage: 325 MG DAILY
     Route: 048
  4. PREDNISOLONE [Concomitant]
     Dosage: 15 MG DAILY
  5. CALTRATE [Concomitant]
     Dosage: 600 MG DAILY
     Route: 048
  6. TEMAZEPAM [Concomitant]
     Dosage: 10 MG DAILY
     Route: 048
  7. OSTELIN [Concomitant]
     Dosage: 1000 IU DAILY
     Route: 048
  8. ATORVASTATIN CALCIUM [Concomitant]
     Dosage: 20 MG DAILY
     Route: 048
  9. FELODIPINE [Concomitant]
     Dosage: 10 MG DAILY
     Route: 048
  10. ACETAMINOPHEN [Concomitant]
     Dosage: 1 G X 4 TIMES
     Route: 048
  11. SULFASALAZINE [Concomitant]
     Dosage: 1 G X 3 TIMES
     Route: 048
  12. RISEDRONATE SODIUM [Concomitant]
     Dosage: 35 MG WEEKLY
     Route: 048
  13. CLOPIDOGREL [Concomitant]
     Dosage: 75 MG DAILY
     Route: 048
  14. FOLIC ACID [Concomitant]
     Dosage: 5 MG DAILY
     Route: 048

REACTIONS (2)
  - CHOLESTASIS [None]
  - LIVER FUNCTION TEST ABNORMAL [None]
